FAERS Safety Report 15470072 (Version 2)
Quarter: 2018Q4

REPORT INFORMATION
  Report Type: Report from Study
  Country: US (occurrence: US)
  Receive Date: 20181005
  Receipt Date: 20181030
  Transmission Date: 20190205
  Serious: Yes (Death, Hospitalization)
  Sender: FDA-Public Use
  Company Number: US-ACTELION-A-NJ2018-178865

PATIENT
  Age: 73 Year
  Sex: Female
  Weight: 62.13 kg

DRUGS (15)
  1. UPTRAVI [Suspect]
     Active Substance: SELEXIPAG
     Dosage: 200 MCG, BID
     Route: 048
  2. UPTRAVI [Suspect]
     Active Substance: SELEXIPAG
     Dosage: UNK
     Route: 048
     Dates: start: 20180816
  3. SIMVASTATIN. [Concomitant]
     Active Substance: SIMVASTATIN
     Dosage: UNK
     Dates: start: 20180810
  4. UPTRAVI [Suspect]
     Active Substance: SELEXIPAG
     Indication: PULMONARY ARTERIAL HYPERTENSION
     Dosage: 600 MCG, BID
     Route: 048
     Dates: end: 20180927
  5. WARFARIN [Concomitant]
     Active Substance: WARFARIN
     Dosage: UNK
     Dates: start: 20180810
  6. TORSEMIDE. [Concomitant]
     Active Substance: TORSEMIDE
     Dosage: UNK
     Dates: start: 20180828
  7. ASPIRIN. [Concomitant]
     Active Substance: ASPIRIN
     Dosage: UNK
     Dates: start: 20170213
  8. METOPROLOL SUCCINATE. [Concomitant]
     Active Substance: METOPROLOL SUCCINATE
     Dosage: UNK
     Dates: start: 20161221
  9. DENOSUMAB [Concomitant]
     Active Substance: DENOSUMAB
     Dosage: UNK
     Dates: start: 20180802
  10. SERTRALINE [Concomitant]
     Active Substance: SERTRALINE HYDROCHLORIDE
     Dosage: UNK
     Dates: start: 20180802
  11. SILDENAFIL. [Concomitant]
     Active Substance: SILDENAFIL
     Dosage: UNK
     Dates: start: 20180904
  12. POTASSIUM CHLORIDE. [Concomitant]
     Active Substance: POTASSIUM CHLORIDE
     Dosage: UNK
     Dates: start: 20180828
  13. UPTRAVI [Suspect]
     Active Substance: SELEXIPAG
     Dosage: 400 MCG, BID
     Route: 048
  14. METOLAZONE. [Concomitant]
     Active Substance: METOLAZONE
     Dosage: UNK
     Dates: start: 20180828
  15. OXYGEN. [Concomitant]
     Active Substance: OXYGEN

REACTIONS (36)
  - Productive cough [Recovering/Resolving]
  - White blood cell count increased [Unknown]
  - Haemoglobin decreased [Unknown]
  - Respiratory failure [Fatal]
  - Dyspnoea [Unknown]
  - Pleural effusion [Unknown]
  - Disease progression [Unknown]
  - Gallbladder disorder [Unknown]
  - Anuria [Unknown]
  - Bacterial infection [Unknown]
  - Cardiac failure congestive [Unknown]
  - Right atrial pressure increased [Unknown]
  - Cardiogenic shock [Unknown]
  - Blood creatinine increased [Unknown]
  - Condition aggravated [Unknown]
  - Right ventricular systolic pressure increased [Unknown]
  - Neutrophil count increased [Unknown]
  - Staphylococcus test positive [Unknown]
  - Oxygen saturation decreased [Unknown]
  - Headache [Not Recovered/Not Resolved]
  - Sputum discoloured [Recovering/Resolving]
  - General physical health deterioration [Unknown]
  - Septic shock [Unknown]
  - Pulmonary oedema [Unknown]
  - Red blood cell count decreased [Unknown]
  - Pyrexia [Unknown]
  - Atrial fibrillation [Unknown]
  - Pulmonary arterial pressure increased [Unknown]
  - Red cell distribution width increased [Unknown]
  - Bronchitis [Recovering/Resolving]
  - Pneumonia [Unknown]
  - Supraventricular tachycardia [Unknown]
  - Hypoxia [Unknown]
  - Chills [Unknown]
  - Haematocrit decreased [Unknown]
  - Blood urea increased [Unknown]

NARRATIVE: CASE EVENT DATE: 20180927
